FAERS Safety Report 6993960-6 (Version None)
Quarter: 2010Q3

REPORT INFORMATION
  Report Type: 
  Country: None (occurrence: None)
  Receive Date: 20100917
  Receipt Date: 20070316
  Transmission Date: 20110219
  Serious: Yes (Other)
  Sender: FDA-Public Use
  Company Number: US-ASTRAZENECA-2006UW03251

PATIENT
  Age: 51 Year
  Sex: Female
  Weight: 77.1 kg

DRUGS (7)
  1. SEROQUEL [Suspect]
     Indication: INSOMNIA
     Dosage: 100 MG DISPENCED, 200 MG AT NIGHT AND 400 MG AT NIGHT
     Route: 048
     Dates: start: 20031120
  2. EFFEXOR XR [Concomitant]
     Dates: start: 20031120, end: 20051220
  3. ZOLOFT [Concomitant]
     Dosage: 100 MG DISPENSED
     Route: 048
     Dates: start: 20031120
  4. FLEXERIL [Concomitant]
     Route: 048
     Dates: start: 20040203
  5. TOPROL-XL [Concomitant]
     Dosage: 25 MG ONE HALF DAILY
     Route: 048
     Dates: start: 20031201
  6. PRILOSEC [Concomitant]
     Route: 048
     Dates: start: 20031014
  7. LIPITOR [Concomitant]
     Route: 048
     Dates: start: 20060119

REACTIONS (6)
  - DIABETES MELLITUS [None]
  - DIABETES MELLITUS INADEQUATE CONTROL [None]
  - OBESITY [None]
  - TARDIVE DYSKINESIA [None]
  - TYPE 2 DIABETES MELLITUS [None]
  - WEIGHT INCREASED [None]
